FAERS Safety Report 6062867-3 (Version None)
Quarter: 2009Q1

REPORT INFORMATION
  Report Type: 
  Country: None (occurrence: None)
  Receive Date: 20090202
  Receipt Date: 20090202
  Transmission Date: 20090719
  Serious: Yes (Other)
  Sender: FDA-Public Use
  Company Number: None

PATIENT
  Sex: Female
  Weight: 68.0396 kg

DRUGS (1)
  1. METHIMOZOLE 10MG EDN LABS/SANDOZ INC [Suspect]
     Indication: THYROID NEOPLASM
     Dosage: 5 MG 3 TIMES DAILY PO
     Route: 048
     Dates: start: 20080910, end: 20081220

REACTIONS (1)
  - WEIGHT INCREASED [None]
